FAERS Safety Report 22641200 (Version 3)
Quarter: 2023Q4

REPORT INFORMATION
  Report Type: Spontaneous
  Country: US (occurrence: US)
  Receive Date: 20230626
  Receipt Date: 20231114
  Transmission Date: 20240110
  Serious: No
  Sender: FDA-Public Use
  Company Number: US-BRISTOL-MYERS SQUIBB COMPANY-2023-089248

PATIENT
  Age: 72 Year
  Sex: Female
  Weight: 95.71 kg

DRUGS (2)
  1. POMALYST [Suspect]
     Active Substance: POMALIDOMIDE
     Indication: Plasma cell myeloma
     Dosage: FREQUENCY-3 WKS ON, 1 WK OFF
     Route: 048
  2. POMALYST [Suspect]
     Active Substance: POMALIDOMIDE
     Indication: Plasma cell myeloma in remission

REACTIONS (9)
  - Sinusitis [Recovering/Resolving]
  - Joint swelling [Unknown]
  - Dizziness [Unknown]
  - Nervous system disorder [Unknown]
  - Blood pressure fluctuation [Unknown]
  - Somnolence [Unknown]
  - Glucose tolerance impaired [Unknown]
  - Feeling abnormal [Unknown]
  - Dyspnoea [Unknown]
